FAERS Safety Report 18538750 (Version 1)
Quarter: 2020Q4

REPORT INFORMATION
  Report Type: Spontaneous
  Country: ES (occurrence: ES)
  Receive Date: 20201123
  Receipt Date: 20201123
  Transmission Date: 20210114
  Serious: Yes (Other)
  Sender: FDA-Public Use
  Company Number: ES-009507513-2011ESP012003

PATIENT
  Age: 38 Year
  Sex: Male
  Weight: 112 kg

DRUGS (1)
  1. NASONEX [Suspect]
     Active Substance: MOMETASONE FUROATE
     Indication: NASAL CONGESTION
     Dosage: ONE PUFF IN EACH NOSTRIL IN THE MORNING AND ONE IN THE EVENING
     Route: 045
     Dates: start: 20201030, end: 20201101

REACTIONS (2)
  - Ageusia [Unknown]
  - Anosmia [Unknown]

NARRATIVE: CASE EVENT DATE: 20201031
